FAERS Safety Report 7986447-5 (Version None)
Quarter: 2011Q4

REPORT INFORMATION
  Report Type: 
  Country: None (occurrence: None)
  Receive Date: 20111216
  Receipt Date: 20110830
  Transmission Date: 20120403
  Serious: Yes (Other)
  Sender: FDA-Public Use
  Company Number: US-BRISTOL-MYERS SQUIBB COMPANY-15899594

PATIENT
  Age: 82 Year
  Sex: Female
  Weight: 59 kg

DRUGS (2)
  1. ABILIFY [Suspect]
     Dosage: PILLS,INITIALLY GIVEN 2MG,THEN REDUCED TO 1MG QD FOR 2 WEEKS
  2. ATIVAN [Suspect]
     Dosage: 1DF:1/2 OF .25 TABLET AS NEEDED

REACTIONS (3)
  - TARDIVE DYSKINESIA [None]
  - WRONG TECHNIQUE IN DRUG USAGE PROCESS [None]
  - BLOOD PRESSURE INCREASED [None]
